FAERS Safety Report 23114913 (Version 1)
Quarter: 2023Q4

REPORT INFORMATION
  Report Type: Spontaneous
  Country: FR (occurrence: FR)
  Receive Date: 20231027
  Receipt Date: 20231027
  Transmission Date: 20240109
  Serious: Yes (Death, Other)
  Sender: FDA-Public Use
  Company Number: FR-INCYTE CORPORATION-2023IN007910

PATIENT
  Sex: Female
  Weight: 75 kg

DRUGS (6)
  1. OXALIPLATIN [Suspect]
     Active Substance: OXALIPLATIN
     Indication: Product used for unknown indication
     Dosage: 1 COURSE
     Route: 065
     Dates: start: 20221207
  2. GEMCITABINE [Suspect]
     Active Substance: GEMCITABINE
     Indication: Product used for unknown indication
     Dosage: 1 COURSE
     Route: 065
     Dates: start: 20221207
  3. TAFASITAMAB [Suspect]
     Active Substance: TAFASITAMAB
     Indication: Diffuse large B-cell lymphoma
     Dosage: 12.2 MILLIGRAM/KILOGRAM, D1 D4 D8 D15 D22
     Route: 042
     Dates: start: 20221115, end: 20221129
  4. TAFASITAMAB [Suspect]
     Active Substance: TAFASITAMAB
     Dosage: 12.2 MILLIGRAM/KILOGRAM, D1 D4 D8 D15 D22
     Route: 042
     Dates: start: 20221115, end: 20221129
  5. TAFASITAMAB [Suspect]
     Active Substance: TAFASITAMAB
     Dosage: 12.2 MILLIGRAM/KILOGRAM, D1 D4 D8 D15 D22
     Route: 042
     Dates: start: 20221115, end: 20221129
  6. RITUXIMAB [Suspect]
     Active Substance: RITUXIMAB
     Indication: Product used for unknown indication
     Dosage: 1 COURSE
     Route: 065
     Dates: start: 20221207

REACTIONS (4)
  - General physical health deterioration [Fatal]
  - Disease progression [Fatal]
  - Diffuse large B-cell lymphoma [Fatal]
  - Drug ineffective [None]
